FAERS Safety Report 14495472 (Version 1)
Quarter: 2018Q1

REPORT INFORMATION
  Report Type: Spontaneous
  Country: US (occurrence: US)
  Receive Date: 20180206
  Receipt Date: 20180206
  Transmission Date: 20180509
  Serious: No
  Sender: FDA-Public Use
  Company Number: US-SMITH AND NEPHEW, INC-2017SMT00371

PATIENT
  Sex: Male
  Weight: 108.84 kg

DRUGS (9)
  1. NOVOLOG [Concomitant]
     Active Substance: INSULIN ASPART
  2. LISINOPRIL. [Concomitant]
     Active Substance: LISINOPRIL
  3. REGRANEX [Suspect]
     Active Substance: BECAPLERMIN
     Indication: DIABETIC ULCER
     Dosage: UNK UNK, AS DIRECTED
     Route: 061
     Dates: start: 20170309, end: 2017
  4. SIMVASTATIN. [Concomitant]
     Active Substance: SIMVASTATIN
  5. ATORVASTATIN [Concomitant]
     Active Substance: ATORVASTATIN
  6. FINASTERIDE. [Concomitant]
     Active Substance: FINASTERIDE
  7. LANTUS [Concomitant]
     Active Substance: INSULIN GLARGINE
  8. PAROXETINE. [Concomitant]
     Active Substance: PAROXETINE
  9. CLOPIDOGREL [Concomitant]
     Active Substance: CLOPIDOGREL BISULFATE
     Dosage: UNK MG, UNK

REACTIONS (1)
  - Drug ineffective [Recovering/Resolving]
